FAERS Safety Report 7689497-1 (Version None)
Quarter: 2011Q3

REPORT INFORMATION
  Report Type: 
  Country: None (occurrence: None)
  Receive Date: 20110817
  Receipt Date: 20110602
  Transmission Date: 20111222
  Serious: No
  Sender: FDA-Public Use
  Company Number: US-TYCO HEALTHCARE/MALLINCKRODT-T201101180

PATIENT
  Age: 51 Year
  Sex: Female

DRUGS (6)
  1. FENTANYL-100 [Suspect]
     Indication: BACK PAIN
     Dosage: 75 UG/HR, Q 48 HOURS
     Route: 062
     Dates: start: 20110501, end: 20110501
  2. ANTIHYPERTENSIVES [Concomitant]
  3. CRESTOR [Concomitant]
  4. LORA TAB [Concomitant]
  5. FENTANYL-100 [Suspect]
     Dosage: 75 UG/HR, Q 72 HOURS
     Dates: start: 20110501
  6. LEXAPRO [Concomitant]

REACTIONS (2)
  - DRUG INEFFECTIVE [None]
  - APPLICATION SITE EROSION [None]
